FAERS Safety Report 5276329-4 (Version None)
Quarter: 2007Q1

REPORT INFORMATION
  Report Type: 
  Country: None (occurrence: None)
  Receive Date: 20070326
  Receipt Date: 20070315
  Transmission Date: 20070707
  Serious: Yes (Other)
  Sender: FDA-Public Use
  Company Number: US-PFIZER INC-2007020291

PATIENT
  Sex: Female
  Weight: 99.8 kg

DRUGS (13)
  1. CELEBREX [Suspect]
     Indication: PAIN
  2. TIKOSYN [Suspect]
     Indication: HEART RATE IRREGULAR
  3. TIKOSYN [Suspect]
  4. LYRICA [Interacting]
     Indication: NEURALGIA
  5. ATENOLOL [Suspect]
  6. LASIX [Interacting]
  7. PLENDIL [Concomitant]
  8. NITROGLYCERIN [Concomitant]
  9. PLAVIX [Concomitant]
  10. ACETYLSALICYLIC ACID SRT [Concomitant]
  11. ZETIA [Concomitant]
  12. TYLENOL W/ CODEINE NO. 3 [Concomitant]
  13. NEXIUM [Concomitant]

REACTIONS (8)
  - BLOOD CHOLESTEROL INCREASED [None]
  - CORONARY ARTERY OCCLUSION [None]
  - DRESSLER'S SYNDROME [None]
  - DRUG INEFFECTIVE [None]
  - DRUG INTERACTION [None]
  - HYPERTENSION [None]
  - MYOCARDIAL INFARCTION [None]
  - PAIN [None]
